FAERS Safety Report 9413214 (Version 1)
Quarter: 2013Q3

REPORT INFORMATION
  Report Type: Spontaneous
  Country: NO (occurrence: NO)
  Receive Date: 20130722
  Receipt Date: 20130722
  Transmission Date: 20140515
  Serious: Yes (Hospitalization)
  Sender: FDA-Public Use
  Company Number: NO-EISAI INC-E2007-01250-SPO-NO

PATIENT
  Age: 17 Year
  Sex: Male

DRUGS (3)
  1. FYCOMPA (PERAMPANEL) [Suspect]
     Indication: EPILEPSY
     Dosage: 4 MG/DAY
     Route: 048
     Dates: start: 20130118, end: 201302
  2. TRILEPTAL [Concomitant]
     Indication: PRODUCT USED FOR UNKNOWN INDICATION
     Dosage: UNKNOWN
     Dates: end: 201301
  3. TALOXA [Concomitant]
     Indication: EPILEPSY

REACTIONS (4)
  - General physical health deterioration [Recovered/Resolved]
  - Epilepsy [Recovered/Resolved]
  - Dizziness [Recovered/Resolved]
  - Aggression [Recovered/Resolved]
